FAERS Safety Report 6138036-5 (Version None)
Quarter: 2009Q1

REPORT INFORMATION
  Report Type: 
  Country: None (occurrence: None)
  Receive Date: 20090327
  Receipt Date: 20090308
  Transmission Date: 20090719
  Serious: Yes (Hospitalization)
  Sender: FDA-Public Use
  Company Number: 2005S1002316

PATIENT
  Age: 62 Year
  Sex: Male
  Weight: 102.9665 kg

DRUGS (17)
  1. PHOSPHOSODA GINGER LEMON [Suspect]
     Indication: COLONOSCOPY
     Dosage: 90 ML; TOTAL; PO
     Route: 048
     Dates: start: 20041109, end: 20041109
  2. NORVASC [Concomitant]
  3. CATAPRES-TTS-1 [Concomitant]
  4. ASPIRIN [Concomitant]
  5. GLUCOPHAGE [Concomitant]
  6. VITAMINS /90003601/ [Concomitant]
  7. NEXIUM [Concomitant]
  8. LISINOPRIL [Concomitant]
  9. FIBERCON /00567702/ [Concomitant]
  10. FISH OIL [Concomitant]
  11. LIPITOR [Concomitant]
  12. LABETALOL HYDROCHLORIDE [Concomitant]
  13. INSULIN [Concomitant]
  14. AVELOX /01453201/ [Concomitant]
  15. HYDROCHLOROTHIAZIDE [Concomitant]
  16. NOVOLIN /00030501/ [Concomitant]
  17. NOVOLOG [Concomitant]

REACTIONS (13)
  - BUNDLE BRANCH BLOCK LEFT [None]
  - BUNDLE BRANCH BLOCK RIGHT [None]
  - DIALYSIS [None]
  - ELECTROCARDIOGRAM ST-T CHANGE [None]
  - HYPERKALAEMIA [None]
  - HYPERPHOSPHATAEMIA [None]
  - INTERCAPILLARY GLOMERULOSCLEROSIS [None]
  - NEPHROCALCINOSIS [None]
  - RENAL ARTERIOSCLEROSIS [None]
  - RENAL FAILURE ACUTE [None]
  - RENAL FAILURE CHRONIC [None]
  - RENAL TUBULAR NECROSIS [None]
  - TUBULOINTERSTITIAL NEPHRITIS [None]
